FAERS Safety Report 22220872 (Version 1)
Quarter: 2023Q2

REPORT INFORMATION
  Report Type: Spontaneous
  Country: US (occurrence: US)
  Receive Date: 20230418
  Receipt Date: 20230418
  Transmission Date: 20230722
  Serious: No
  Sender: FDA-Public Use
  Company Number: US-PADAGIS-2023PAD00552

PATIENT

DRUGS (3)
  1. MUPIROCIN [Suspect]
     Active Substance: MUPIROCIN
     Indication: Bullous impetigo
     Dosage: UNK
     Route: 065
  2. CEPHALEXIN [Suspect]
     Active Substance: CEPHALEXIN
     Indication: Bullous impetigo
     Dosage: UNK
     Route: 048
  3. CEFDINIR [Suspect]
     Active Substance: CEFDINIR
     Indication: Bullous impetigo
     Dosage: UNK
     Route: 048

REACTIONS (1)
  - Drug ineffective [Unknown]
